FAERS Safety Report 6124347-6 (Version None)
Quarter: 2009Q1

REPORT INFORMATION
  Report Type: 
  Country: None (occurrence: None)
  Receive Date: 20090318
  Receipt Date: 20090318
  Transmission Date: 20090719
  Serious: No
  Sender: FDA-Public Use
  Company Number: None

PATIENT
  Age: 17 Year
  Sex: Female
  Weight: 83.2 kg

DRUGS (1)
  1. DROSPIRENONE AND ETHINYL ESTRADIOL [Suspect]
     Indication: MENSTRUATION IRREGULAR
     Dosage: 1 TABLET DAILY PO
     Route: 048
     Dates: start: 20080101

REACTIONS (2)
  - ACNE [None]
  - PRODUCT QUALITY ISSUE [None]
